FAERS Safety Report 22331015 (Version 55)
Quarter: 2025Q3

REPORT INFORMATION
  Report Type: Report from Study
  Country: CO (occurrence: CO)
  Receive Date: 20230517
  Receipt Date: 20250825
  Transmission Date: 20251021
  Serious: Yes (Hospitalization, Other)
  Sender: TAKEDA
  Company Number: CO-TAKEDA-2022TUS103476

PATIENT
  Age: 4 Year
  Sex: Male
  Weight: 17 kg

DRUGS (4)
  1. TEDUGLUTIDE [Suspect]
     Active Substance: TEDUGLUTIDE
     Indication: Short-bowel syndrome
     Dosage: 0.8 MILLIGRAM, QD
     Dates: start: 20221025
  2. TEDUGLUTIDE [Suspect]
     Active Substance: TEDUGLUTIDE
     Dosage: 1 MILLIGRAM, QD
  3. TEDUGLUTIDE [Suspect]
     Active Substance: TEDUGLUTIDE
     Dosage: 1 MILLIGRAM, QD
  4. TEDUGLUTIDE [Suspect]
     Active Substance: TEDUGLUTIDE

REACTIONS (27)
  - Diarrhoea [Recovered/Resolved]
  - Dehydration [Unknown]
  - Gastrointestinal viral infection [Unknown]
  - Weight decreased [Unknown]
  - Device breakage [Unknown]
  - Vascular device infection [Recovering/Resolving]
  - Pyrexia [Recovered/Resolved]
  - Asthma [Unknown]
  - Vomiting [Recovered/Resolved]
  - Product packaging quantity issue [Unknown]
  - Syringe issue [Unknown]
  - Product availability issue [Unknown]
  - Blood albumin decreased [Unknown]
  - Treatment noncompliance [Unknown]
  - Weight increased [Unknown]
  - Body height increased [Unknown]
  - Injection site papule [Recovered/Resolved]
  - Urine output decreased [Recovered/Resolved]
  - Frequent bowel movements [Not Recovered/Not Resolved]
  - Secretion discharge [Unknown]
  - Incorrect dose administered [Unknown]
  - Product prescribing error [Unknown]
  - Discouragement [Not Recovered/Not Resolved]
  - Eyelid oedema [Recovered/Resolved]
  - Influenza [Not Recovered/Not Resolved]
  - Cough [Unknown]
  - Decreased appetite [Not Recovered/Not Resolved]

NARRATIVE: CASE EVENT DATE: 20221205
